FAERS Safety Report 12527944 (Version 2)
Quarter: 2016Q3

REPORT INFORMATION
  Report Type: Report from Study
  Country: FR (occurrence: FR)
  Receive Date: 20160705
  Receipt Date: 20160713
  Transmission Date: 20161109
  Serious: Yes (Other)
  Sender: FDA-Public Use
  Company Number: FR-AMGEN-FRACT2016084852

PATIENT
  Age: 63 Year
  Sex: Female
  Weight: 80 kg

DRUGS (7)
  1. DENOSUMAB [Suspect]
     Active Substance: DENOSUMAB
     Indication: BONE GIANT CELL TUMOUR
     Dosage: 120 MG, Q4WK
     Route: 042
     Dates: start: 20110518, end: 20130320
  2. STEROGYL [Concomitant]
     Active Substance: ERGOCALCIFEROL
     Indication: HYPERCALCAEMIA
     Dosage: 5 DROP, QD
     Route: 048
     Dates: start: 20120208, end: 201203
  3. DAFALGAN [Concomitant]
     Active Substance: ACETAMINOPHEN
     Indication: ARTHRALGIA
     Dosage: 1 UNIT, AS NECESSARY
     Route: 048
     Dates: start: 201103, end: 201107
  4. UVEDOSE [Concomitant]
     Active Substance: CHOLECALCIFEROL
     Indication: SUPPLEMENTATION THERAPY
     Dosage: 100000 UI, QD
     Route: 048
     Dates: start: 2012, end: 201208
  5. LIPANTHYL [Concomitant]
     Active Substance: FENOFIBRATE
     Indication: PROPHYLAXIS
     Dosage: 200 MG, QD
     Route: 048
     Dates: start: 2003
  6. TENORMIN [Concomitant]
     Active Substance: ATENOLOL
     Indication: HYPERTENSION
     Dosage: 100 MG, QD
     Route: 048
     Dates: start: 1997
  7. CALCIDOSE [Concomitant]
     Active Substance: CALCIUM CARBONATE
     Indication: PROPHYLAXIS
     Dosage: 1 UNIT, QD
     Route: 048
     Dates: start: 201105, end: 201106

REACTIONS (1)
  - Osteonecrosis of jaw [Recovered/Resolved]

NARRATIVE: CASE EVENT DATE: 201304
